FAERS Safety Report 8523341-5 (Version None)
Quarter: 2012Q3

REPORT INFORMATION
  Report Type: 
  Country: None (occurrence: None)
  Receive Date: 20120709
  Receipt Date: 20120625
  Transmission Date: 20120928
  Serious: Yes (Hospitalization)
  Sender: FDA-Public Use
  Company Number: DSM-2012-00730

PATIENT
  Age: 74 Year
  Sex: Male

DRUGS (5)
  1. LIPITOR [Concomitant]
  2. OLMESARTAN MEDOXOMIL [Suspect]
     Indication: HYPERTENSION
     Dosage: 20 MG,ORAL ; 40 MG,ORAL
     Route: 048
     Dates: start: 20060801, end: 20090914
  3. OLMESARTAN MEDOXOMIL [Suspect]
     Indication: HYPERTENSION
     Dosage: 20 MG,ORAL ; 40 MG,ORAL
     Route: 048
     Dates: start: 20060425, end: 20060731
  4. OMEXEL (TAMSULOSIN HYDROCHLORIDE) (TAMSULOSIN HYDROCHLORIDE) [Concomitant]
  5. ASPIRIN [Concomitant]

REACTIONS (2)
  - DIARRHOEA [None]
  - WEIGHT DECREASED [None]
